FAERS Safety Report 4430858-1 (Version None)
Quarter: 2004Q3

REPORT INFORMATION
  Report Type: 
  Country: None (occurrence: None)
  Receive Date: 20040823
  Receipt Date: 20040813
  Transmission Date: 20050211
  Serious: Yes (Hospitalization)
  Sender: FDA-Public Use
  Company Number: US-GLAXOSMITHKLINE-A0522920A

PATIENT
  Age: 10 Year
  Sex: Female
  Weight: 40.9 kg

DRUGS (1)
  1. WELLBUTRIN [Suspect]
     Indication: ILL-DEFINED DISORDER
     Dosage: 2550MG SINGLE DOSE
     Route: 048
     Dates: start: 20040806

REACTIONS (4)
  - DIZZINESS [None]
  - GRAND MAL CONVULSION [None]
  - OVERDOSE [None]
  - VISUAL DISTURBANCE [None]
